FAERS Safety Report 8644667 (Version 2)
Quarter: 2012Q4

REPORT INFORMATION
  Report Type: 
  Country: SI (occurrence: SI)
  Receive Date: 20120702
  Receipt Date: 20121024
  Transmission Date: 20130627
  Serious: Yes (Other)
  Sender: FDA-Public Use
  Company Number: SI-AMGEN-SVNSP2012039989

PATIENT
  Age: 58 Year
  Sex: Female
  Weight: 57.5 kg

DRUGS (3)
  1. PROLIA [Suspect]
     Indication: OSTEOPOROSIS
     Dosage: 60 mg, q6mo
     Route: 030
     Dates: start: 20111215
  2. PLIVIT D3 [Concomitant]
     Indication: OSTEOPOROSIS
     Dosage: 35 Gtt, qwk
     Route: 048
     Dates: start: 20091014
  3. CALCIUM CARBONATE [Concomitant]
     Indication: OSTEOPOROSIS
     Dosage: 1 g, UNK
     Route: 048
     Dates: start: 20091014

REACTIONS (3)
  - Osteoarthritis [Not Recovered/Not Resolved]
  - Osteonecrosis of jaw [Recovering/Resolving]
  - Incorrect route of drug administration [Unknown]
